FAERS Safety Report 5573371-0 (Version None)
Quarter: 2007Q4

REPORT INFORMATION
  Report Type: 
  Country: None (occurrence: None)
  Receive Date: 20071220
  Receipt Date: 20071220
  Transmission Date: 20080405
  Serious: Yes (Hospitalization)
  Sender: FDA-Public Use
  Company Number: None

PATIENT
  Sex: Female
  Weight: 112 kg

DRUGS (3)
  1. FLUOROURACIL [Suspect]
     Dosage: 6160 MG
     Dates: end: 20071203
  2. LEUCOVORIN CALCIUM [Suspect]
     Dosage: 880 MG
     Dates: end: 20071203
  3. ELOXATIN [Suspect]
     Dosage: 185 MG
     Dates: end: 20071203

REACTIONS (3)
  - DEEP VEIN THROMBOSIS [None]
  - PULMONARY EMBOLISM [None]
  - SKIN WARM [None]
